FAERS Safety Report 5179394-8 (Version None)
Quarter: 2006Q4

REPORT INFORMATION
  Report Type: 
  Country: None (occurrence: None)
  Receive Date: 20061219
  Receipt Date: 20061130
  Transmission Date: 20070319
  Serious: Yes (Other)
  Sender: FDA-Public Use
  Company Number: FR-ROCHE-473516

PATIENT
  Sex: Female

DRUGS (2)
  1. CELLCEPT [Suspect]
     Route: 065
  2. SIROLIMUS [Concomitant]
     Indication: LIVER TRANSPLANT

REACTIONS (2)
  - ASCITES [None]
  - NODULAR REGENERATIVE HYPERPLASIA [None]
